FAERS Safety Report 11254710 (Version 1)
Quarter: 2015Q3

REPORT INFORMATION
  Report Type: Spontaneous
  Country: AT (occurrence: AT)
  Receive Date: 20150709
  Receipt Date: 20150709
  Transmission Date: 20151125
  Serious: Yes (Hospitalization)
  Sender: FDA-Public Use
  Company Number: AT-PFIZER INC-2015223658

PATIENT
  Age: 74 Year
  Sex: Male

DRUGS (2)
  1. TAZONAM [Suspect]
     Active Substance: TAZOBACTAM
     Indication: OSTEOMYELITIS
     Dosage: 1 DF, 3X/DAY
     Route: 042
     Dates: start: 20150605, end: 20150616
  2. TAZONAM [Suspect]
     Active Substance: TAZOBACTAM
     Indication: LOCALISED INFECTION

REACTIONS (1)
  - Coagulopathy [Recovered/Resolved]

NARRATIVE: CASE EVENT DATE: 201506
